FAERS Safety Report 9578274 (Version 1)
Quarter: 2013Q4

REPORT INFORMATION
  Report Type: Spontaneous
  Country: US (occurrence: US)
  Receive Date: 20131001
  Receipt Date: 20131001
  Transmission Date: 20140711
  Serious: No
  Sender: FDA-Public Use
  Company Number: US-AMGEN-USASP2013012414

PATIENT
  Sex: Female
  Weight: 99.77 kg

DRUGS (11)
  1. ENBREL [Suspect]
     Indication: RHEUMATOID ARTHRITIS
     Dosage: 50 MG, QWK
     Route: 058
  2. AMBIEN [Concomitant]
     Dosage: 10 MG, UNK
  3. TRAZODONE [Concomitant]
     Dosage: 100 MG, UNK
  4. ATIVAN [Concomitant]
     Dosage: 0.5 MG, UNK
  5. ASPIRIN [Concomitant]
     Dosage: 81 MG, UNK
  6. FLEXERIL                           /00428402/ [Concomitant]
     Dosage: 10 MG, UNK
  7. CELEXA                             /00582602/ [Concomitant]
     Dosage: 10 MG, UNK
  8. LASIX                              /00032601/ [Concomitant]
     Dosage: 20 MG, UNK
  9. LIPITOR [Concomitant]
     Dosage: 20 MG, UNK
  10. SINGULAIR [Concomitant]
     Dosage: 4 MG, UNK
  11. FOLIC ACID [Concomitant]
     Dosage: UNK

REACTIONS (7)
  - Cough [Unknown]
  - Retching [Unknown]
  - Vomiting [Unknown]
  - Hypotension [Unknown]
  - Joint swelling [Unknown]
  - Arthralgia [Unknown]
  - Joint stiffness [Unknown]
